FAERS Safety Report 25438136 (Version 1)
Quarter: 2025Q2

REPORT INFORMATION
  Report Type: Other
  Country: US (occurrence: US)
  Receive Date: 20250616
  Receipt Date: 20250616
  Transmission Date: 20250717
  Serious: Yes (Death, Life-Threatening, Hospitalization, Other)
  Sender: VISTAPHARM
  Company Number: US-Vista Pharmaceuticals Inc.-2178750

PATIENT
  Age: 6 Decade
  Sex: Male

DRUGS (2)
  1. SULFAMETHOXAZOLE\TRIMETHOPRIM [Suspect]
     Active Substance: SULFAMETHOXAZOLE\TRIMETHOPRIM
     Indication: Urinary tract infection
  2. ACYCLOVIR [Concomitant]
     Active Substance: ACYCLOVIR

REACTIONS (3)
  - Drug reaction with eosinophilia and systemic symptoms [Fatal]
  - Cardiopulmonary failure [Fatal]
  - Acute respiratory failure [Fatal]
